FAERS Safety Report 16087423 (Version 3)
Quarter: 2019Q2

REPORT INFORMATION
  Report Type: Spontaneous
  Country: US (occurrence: US)
  Receive Date: 20190319
  Receipt Date: 20190522
  Transmission Date: 20190711
  Serious: No
  Sender: FDA-Public Use
  Company Number: US-AMGEN-USASP2019039261

PATIENT
  Age: 64 Year
  Sex: Female
  Weight: 74.38 kg

DRUGS (2)
  1. CALCIUM [Concomitant]
     Active Substance: CALCIUM
     Dosage: UNK
  2. PROLIA [Suspect]
     Active Substance: DENOSUMAB
     Indication: OSTEOPOROSIS POSTMENOPAUSAL
     Dosage: 60 MILLIGRAM, Q6MO
     Route: 065
     Dates: start: 2017

REACTIONS (9)
  - Blood parathyroid hormone increased [Recovered/Resolved]
  - Rash papular [Unknown]
  - Back pain [Unknown]
  - Skin atrophy [Unknown]
  - Pain in extremity [Unknown]
  - Hypercalcaemia [Unknown]
  - Diarrhoea [Unknown]
  - Thyroid mass [Not Recovered/Not Resolved]
  - Thyroid cyst [Not Recovered/Not Resolved]
